FAERS Safety Report 5887452-5 (Version None)
Quarter: 2008Q3

REPORT INFORMATION
  Report Type: 
  Country: None (occurrence: None)
  Receive Date: 20080915
  Receipt Date: 20080826
  Transmission Date: 20090109
  Serious: Yes (Disabling)
  Sender: FDA-Public Use
  Company Number: 2008-001

PATIENT
  Sex: Male

DRUGS (3)
  1. DIUREX TAB [Suspect]
     Indication: ABDOMINAL DISTENSION
     Dosage: ONE PILL PER DAY ORAL
     Route: 048
  2. DIUREX TAB [Suspect]
     Indication: FATIGUE
     Dosage: ONE PILL PER DAY ORAL
     Route: 048
  3. DIUREX TAB [Suspect]
     Indication: PREMENSTRUAL SYNDROME
     Dosage: ONE PILL PER DAY ORAL
     Route: 048

REACTIONS (4)
  - AGEUSIA [None]
  - ANOSMIA [None]
  - DYSGEUSIA [None]
  - PAROSMIA [None]
